FAERS Safety Report 9775996 (Version 1)
Quarter: 2013Q4

REPORT INFORMATION
  Report Type: Spontaneous
  Country: GB (occurrence: None)
  Receive Date: 20131219
  Receipt Date: 20131219
  Transmission Date: 20140711
  Serious: Yes (Other)
  Sender: FDA-Public Use
  Company Number: 2013-GB-004447

PATIENT
  Age: 12 Year
  Sex: 0

DRUGS (1)
  1. XYREM (SODIUM OXYBATE) ORAL SOLUTION, 500MG/ML [Suspect]
     Indication: NARCOLEPSY
     Route: 048

REACTIONS (3)
  - Skin discolouration [None]
  - Oedema peripheral [None]
  - Local swelling [None]
